FAERS Safety Report 17092431 (Version 1)
Quarter: 2019Q4

REPORT INFORMATION
  Report Type: Spontaneous
  Country: US (occurrence: US)
  Receive Date: 20191129
  Receipt Date: 20191129
  Transmission Date: 20200122
  Serious: No
  Sender: FDA-Public Use
  Company Number: US-UCBSA-2018006677

PATIENT
  Sex: Female
  Weight: 65 kg

DRUGS (3)
  1. BENADRYL [Concomitant]
     Active Substance: DIPHENHYDRAMINE HYDROCHLORIDE
     Indication: RASH PRURITIC
     Dosage: UNK
     Dates: start: 201802, end: 201802
  2. CIMZIA [Suspect]
     Active Substance: CERTOLIZUMAB PEGOL
     Dosage: 400 MG, EV 4 WEEKS
     Route: 058
     Dates: end: 20180214
  3. CIMZIA [Suspect]
     Active Substance: CERTOLIZUMAB PEGOL
     Indication: RHEUMATOID ARTHRITIS
     Dosage: 400 MG, EV 2 WEEKS(QOW)
     Route: 058
     Dates: start: 201712

REACTIONS (6)
  - Rash pruritic [Unknown]
  - Thermal burn [Unknown]
  - Asthenia [Unknown]
  - Influenza [Unknown]
  - Malaise [Unknown]
  - Epistaxis [Unknown]
